FAERS Safety Report 10983614 (Version 3)
Quarter: 2015Q2

REPORT INFORMATION
  Report Type: Report from Study
  Country: DE (occurrence: DE)
  Receive Date: 20150403
  Receipt Date: 20150528
  Transmission Date: 20150821
  Serious: Yes (Hospitalization)
  Sender: FDA-Public Use
  Company Number: DE-SA-2015SA041128

PATIENT
  Age: 52 Year
  Sex: Male
  Weight: 110 kg

DRUGS (24)
  1. LANTUS [Suspect]
     Active Substance: INSULIN GLARGINE
     Indication: TYPE 2 DIABETES MELLITUS
     Dosage: DOSE:35 UNIT(S)
     Route: 065
     Dates: start: 20140912, end: 20141111
  2. METFORMIN [Concomitant]
     Active Substance: METFORMIN HYDROCHLORIDE
  3. CORVATON [Concomitant]
     Active Substance: MOLSIDOMINE
  4. AMITRIPTYLIN [Concomitant]
     Active Substance: AMITRIPTYLINE
  5. LANTUS [Suspect]
     Active Substance: INSULIN GLARGINE
     Indication: TYPE 2 DIABETES MELLITUS
     Dosage: DOSE:22 UNIT(S)
     Route: 065
     Dates: start: 20140520
  6. LANTUS [Suspect]
     Active Substance: INSULIN GLARGINE
     Indication: TYPE 2 DIABETES MELLITUS
     Route: 065
     Dates: start: 20140722, end: 20140727
  7. ACETYLSALICYLIC ACID [Concomitant]
     Active Substance: ASPIRIN
  8. PANTOZOL [Concomitant]
     Active Substance: PANTOPRAZOLE SODIUM
  9. LANTUS [Suspect]
     Active Substance: INSULIN GLARGINE
     Indication: TYPE 2 DIABETES MELLITUS
     Dosage: DOSE:12 UNIT(S)
     Route: 065
     Dates: start: 20140123
  10. NOVORAPID [Concomitant]
     Active Substance: INSULIN ASPART
  11. EFIENT [Concomitant]
     Active Substance: PRASUGREL HYDROCHLORIDE
  12. AMLODIPINE [Concomitant]
     Active Substance: AMLODIPINE BESYLATE
  13. OXYGESIC [Concomitant]
     Active Substance: OXYCODONE
  14. SIMVASTATIN. [Concomitant]
     Active Substance: SIMVASTATIN
  15. CLEXANE [Concomitant]
     Active Substance: ENOXAPARIN SODIUM
     Route: 058
     Dates: end: 20140727
  16. NOVALGIN [Concomitant]
     Active Substance: METAMIZOLE SODIUM
  17. LANTUS [Suspect]
     Active Substance: INSULIN GLARGINE
     Indication: TYPE 2 DIABETES MELLITUS
     Route: 065
  18. VIANI [Concomitant]
     Active Substance: FLUTICASONE PROPIONATE\SALMETEROL XINAFOATE
     Dosage: 50/250MCG NOS
  19. RAMIPRIL. [Concomitant]
     Active Substance: RAMIPRIL
  20. METOPROLOL [Concomitant]
     Active Substance: METOPROLOL
  21. ARCOXIA [Concomitant]
     Active Substance: ETORICOXIB
  22. NITROLINGUAL [Concomitant]
     Active Substance: NITROGLYCERIN
     Dosage: SPRAY
  23. CITALOPRAM [Concomitant]
     Active Substance: CITALOPRAM HYDROBROMIDE
  24. LYRICA [Concomitant]
     Active Substance: PREGABALIN

REACTIONS (10)
  - Glycosylated haemoglobin increased [Unknown]
  - Hypoglycaemia [Not Recovered/Not Resolved]
  - Cervicobrachial syndrome [Recovering/Resolving]
  - Blood glucose increased [Recovering/Resolving]
  - Fatigue [Not Recovered/Not Resolved]
  - Overdose [Unknown]
  - Condition aggravated [Unknown]
  - Disturbance in attention [Not Recovered/Not Resolved]
  - Dizziness [Not Recovered/Not Resolved]
  - Angina unstable [Not Recovered/Not Resolved]

NARRATIVE: CASE EVENT DATE: 2014
